FAERS Safety Report 7070645-1 (Version None)
Quarter: 2010Q4

REPORT INFORMATION
  Report Type: 
  Country: None (occurrence: None)
  Receive Date: 20101029
  Receipt Date: 20101017
  Transmission Date: 20110411
  Serious: Yes (Hospitalization)
  Sender: FDA-Public Use
  Company Number: CA-JNJFOC-20100805869

PATIENT
  Sex: Male
  Weight: 104.33 kg

DRUGS (11)
  1. STELARA [Suspect]
     Indication: PSORIASIS
     Route: 058
     Dates: start: 20100709
  2. STELARA [Suspect]
     Route: 058
     Dates: start: 20100709
  3. PREDNISONE [Concomitant]
  4. TRAMADOL HCL [Concomitant]
  5. PRILOSEC [Concomitant]
  6. SYNTHROID [Concomitant]
  7. EZETROL [Concomitant]
  8. MONOPRIL [Concomitant]
  9. SODIUM BICARBONATE [Concomitant]
  10. ASPIRIN [Concomitant]
  11. ALLOPURINOL [Concomitant]

REACTIONS (6)
  - ARTHRITIS [None]
  - BACK PAIN [None]
  - INFLUENZA LIKE ILLNESS [None]
  - LARGE INTESTINE PERFORATION [None]
  - PYREXIA [None]
  - VOMITING [None]
